FAERS Safety Report 24208287 (Version 1)
Quarter: 2024Q3

REPORT INFORMATION
  Report Type: Spontaneous
  Country: ES (occurrence: ES)
  Receive Date: 20240814
  Receipt Date: 20240814
  Transmission Date: 20241017
  Serious: Yes (Life-Threatening, Hospitalization, Other)
  Sender: ORGANON
  Company Number: ES-SA-2019SA065755

PATIENT
  Age: 45 Year
  Sex: Male

DRUGS (12)
  1. EZETIMIBE [Suspect]
     Active Substance: EZETIMIBE
     Indication: Lipids increased
     Dosage: UNK
     Route: 048
  2. EZETIMIBE [Suspect]
     Active Substance: EZETIMIBE
     Indication: Hypercholesterolaemia
  3. PITAVASTATIN [Suspect]
     Active Substance: PITAVASTATIN
     Indication: Lipids increased
     Dosage: HIGH-DOSE
  4. PITAVASTATIN [Suspect]
     Active Substance: PITAVASTATIN
     Indication: Hypercholesterolaemia
  5. ATORVASTATIN [Suspect]
     Active Substance: ATORVASTATIN
     Indication: Lipids increased
     Dosage: HIGH DOSE
  6. ATORVASTATIN [Suspect]
     Active Substance: ATORVASTATIN
     Indication: Lipids abnormal
  7. EVEROLIMUS [Suspect]
     Active Substance: EVEROLIMUS
     Indication: Immunosuppressant drug therapy
     Dosage: UNK
     Dates: start: 201704, end: 201802
  8. PREDNISONE [Suspect]
     Active Substance: PREDNISONE
     Indication: Immunosuppressant drug therapy
     Dosage: UNK
  9. PRALUENT [Suspect]
     Active Substance: ALIROCUMAB
     Indication: Dyslipidaemia
     Dosage: 75 MG/15 DAYS
     Dates: start: 201709
  10. MYCOPHENOLATE MOFETIL [Suspect]
     Active Substance: MYCOPHENOLATE MOFETIL
     Indication: Immunosuppressant drug therapy
     Dosage: UNK
     Dates: start: 201704
  11. TACROLIMUS [Suspect]
     Active Substance: TACROLIMUS
     Indication: Immunosuppressant drug therapy
     Dosage: UNK
  12. AZATHIOPRINE [Concomitant]
     Active Substance: AZATHIOPRINE
     Indication: Immunosuppressant drug therapy
     Dosage: UNK
     Dates: start: 201802

REACTIONS (14)
  - Hypercholesterolaemia [Recovering/Resolving]
  - Hypotension [Recovered/Resolved]
  - Skin lesion [Recovered/Resolved]
  - Pneumonia [Recovered/Resolved]
  - Dyslipidaemia [Recovered/Resolved]
  - Condition aggravated [Recovered/Resolved]
  - Metabolic acidosis [Recovered/Resolved]
  - Odynophagia [Recovered/Resolved]
  - Anuria [Recovered/Resolved]
  - Pulmonary sepsis [Recovered/Resolved]
  - Pruritus [Unknown]
  - Hepatic function abnormal [Unknown]
  - Productive cough [Recovered/Resolved]
  - Pyrexia [Recovered/Resolved]

NARRATIVE: CASE EVENT DATE: 20170401
